FAERS Safety Report 21368410 (Version 3)
Quarter: 2023Q1

REPORT INFORMATION
  Report Type: Spontaneous
  Country: ES (occurrence: ES)
  Receive Date: 20220923
  Receipt Date: 20230320
  Transmission Date: 20230418
  Serious: Yes (Hospitalization, Other)
  Sender: FDA-Public Use
  Company Number: ES-JNJFOC-20220933896

PATIENT
  Age: 21 Year
  Sex: Male
  Weight: 79.3 kg

DRUGS (2)
  1. STELARA [Suspect]
     Active Substance: USTEKINUMAB
     Indication: Crohn^s disease
     Dosage: WEEK 0
     Route: 040
     Dates: start: 202111
  2. STELARA [Suspect]
     Active Substance: USTEKINUMAB
     Route: 058
     Dates: end: 202208

REACTIONS (5)
  - Pancreatitis acute [Recovering/Resolving]
  - Portal vein thrombosis [Recovering/Resolving]
  - Varicose vein [Recovering/Resolving]
  - Varices oesophageal [Recovering/Resolving]
  - Portal hypertensive gastropathy [Recovering/Resolving]

NARRATIVE: CASE EVENT DATE: 20220401
